FAERS Safety Report 7722283-2 (Version None)
Quarter: 2011Q3

REPORT INFORMATION
  Report Type: 
  Country: None (occurrence: None)
  Receive Date: 20110831
  Receipt Date: 20110824
  Transmission Date: 20111222
  Serious: Yes (Other)
  Sender: FDA-Public Use
  Company Number: DE-ELI_LILLY_AND_COMPANY-DE201108001372

PATIENT
  Sex: Female

DRUGS (2)
  1. BYETTA [Suspect]
     Route: 058
  2. METFORMIN [Concomitant]

REACTIONS (1)
  - LACTIC ACIDOSIS [None]
